APPROVED DRUG PRODUCT: HYDROCORTISONE BUTYRATE
Active Ingredient: HYDROCORTISONE BUTYRATE
Strength: 0.1%
Dosage Form/Route: LOTION;TOPICAL
Application: A209556 | Product #001 | TE Code: AB
Applicant: THE J MOLNER CO OU
Approved: Nov 21, 2017 | RLD: No | RS: No | Type: RX